FAERS Safety Report 12643197 (Version 1)
Quarter: 2016Q3

REPORT INFORMATION
  Report Type: Spontaneous
  Country: US (occurrence: US)
  Receive Date: 20160811
  Receipt Date: 20160811
  Transmission Date: 20161109
  Serious: No
  Sender: FDA-Public Use
  Company Number: US-BEH-2016072238

PATIENT
  Sex: Male
  Weight: 72.56 kg

DRUGS (12)
  1. DIPHENHYDRAMINE. [Concomitant]
     Active Substance: DIPHENHYDRAMINE
  2. AMOXICILLIN. [Concomitant]
     Active Substance: AMOXICILLIN
  3. CELECOXIB. [Concomitant]
     Active Substance: CELECOXIB
  4. GABAPENTIN. [Concomitant]
     Active Substance: GABAPENTIN
  5. HIZENTRA [Suspect]
     Active Substance: HUMAN IMMUNOGLOBULIN G
     Indication: IMMUNODEFICIENCY COMMON VARIABLE
     Dosage: 10 G, QW
     Route: 058
     Dates: start: 20131120
  6. VITAMIN B12 [Concomitant]
     Active Substance: CYANOCOBALAMIN
  7. EPIPEN [Concomitant]
     Active Substance: EPINEPHRINE
  8. TYLENOL [Concomitant]
     Active Substance: ACETAMINOPHEN
  9. IBUPROFEN. [Concomitant]
     Active Substance: IBUPROFEN
  10. MAGNESIUM OXIDE. [Concomitant]
     Active Substance: MAGNESIUM OXIDE
  11. LMX                                /00033401/ [Concomitant]
  12. PROBIOTIC                          /06395501/ [Concomitant]
     Active Substance: BIFIDOBACTERIUM ANIMALIS SUBSP. LACTIS

REACTIONS (1)
  - Vomiting [Unknown]
